FAERS Safety Report 6407865-2 (Version None)
Quarter: 2009Q4

REPORT INFORMATION
  Report Type: 
  Country: None (occurrence: None)
  Receive Date: 20091015
  Receipt Date: 20091006
  Transmission Date: 20100525
  Serious: Yes (Other)
  Sender: FDA-Public Use
  Company Number: 2009US000581

PATIENT
  Sex: Female
  Weight: 2.6 kg

DRUGS (5)
  1. PROGRAF [Suspect]
     Indication: DRUG EXPOSURE DURING PREGNANCY
     Dosage: 2 MG, BID, ORAL; 7 MG, UID/QD, ORAL
     Route: 048
  2. CELLCEPT [Concomitant]
  3. AZATHIOPRINE [Concomitant]
  4. PREDNISONE TAB [Concomitant]
  5. PRENATAL VITAMINS (TOCOPHEROL, NICOTINIC ACID, VITAMIN D NOS, MINERALS [Concomitant]

REACTIONS (5)
  - ANOMALY OF EXTERNAL EAR CONGENITAL [None]
  - CAESAREAN SECTION [None]
  - MATERNAL DRUGS AFFECTING FOETUS [None]
  - PREMATURE BABY [None]
  - SYNDACTYLY [None]
